FAERS Safety Report 7447585-9 (Version None)
Quarter: 2011Q2

REPORT INFORMATION
  Report Type: 
  Country: None (occurrence: None)
  Receive Date: 20110429
  Receipt Date: 20110415
  Transmission Date: 20111010
  Serious: Yes (Other)
  Sender: FDA-Public Use
  Company Number: KR-WATSON-2011-05740

PATIENT
  Age: 61 Year
  Sex: Female

DRUGS (2)
  1. DEXAMETHASONE [Suspect]
     Indication: BLOOD CORTISOL INCREASED
     Dosage: 0.5 MG, Q6H X 1 DAY
     Route: 048
  2. DEXAMETHASONE [Suspect]
     Dosage: 2 MG, Q6H X 1 DAY
     Route: 048

REACTIONS (1)
  - PHAEOCHROMOCYTOMA CRISIS [None]
